FAERS Safety Report 13570134 (Version 1)
Quarter: 2017Q2

REPORT INFORMATION
  Report Type: Spontaneous
  Country: DO (occurrence: DO)
  Receive Date: 20170522
  Receipt Date: 20170522
  Transmission Date: 20170830
  Serious: Yes (Hospitalization)
  Sender: FDA-Public Use
  Company Number: DO-ABBVIE-17P-279-1983357-00

PATIENT
  Age: 28 Year
  Sex: Male

DRUGS (1)
  1. VALPAKINE [Suspect]
     Active Substance: VALPROATE SODIUM
     Indication: AFFECTIVE DISORDER
     Route: 048
     Dates: start: 20170512, end: 20170512

REACTIONS (5)
  - Ill-defined disorder [Recovered/Resolved]
  - Salivary hypersecretion [Recovered/Resolved]
  - Protrusion tongue [Recovered/Resolved]
  - Seizure [Recovered/Resolved]
  - Hypokinesia [Recovered/Resolved]

NARRATIVE: CASE EVENT DATE: 20170512
